FAERS Safety Report 9261907 (Version 1)
Quarter: 2013Q2

REPORT INFORMATION
  Report Type: Report from Study
  Country: TW (occurrence: TW)
  Receive Date: 20130429
  Receipt Date: 20130429
  Transmission Date: 20140414
  Serious: No
  Sender: FDA-Public Use
  Company Number: PHHY2013TW041478

PATIENT
  Age: 60 Year
  Sex: Female

DRUGS (33)
  1. AMN107 [Suspect]
     Dosage: UNK MG, UNK
     Dates: start: 20090527
  2. ACETAMINOPHEN [Concomitant]
     Indication: PAIN
     Dosage: UNK
     Dates: end: 20110216
  3. ACETAMINOPHEN [Concomitant]
     Dosage: UNK
     Dates: start: 20110516, end: 20110521
  4. ACETYLCYSTEIN [Concomitant]
     Indication: PNEUMONIA
     Dosage: UNK
     Dates: start: 20120516, end: 20120615
  5. AMOXICILLIN [Concomitant]
     Indication: PNEUMONIA
     Dosage: UNK
     Dates: start: 20120518, end: 20120523
  6. BENZONATATE [Concomitant]
     Indication: COUGH
     Dosage: UNK
     Dates: start: 20120516, end: 20120521
  7. CICLOPIROX MYLAN [Concomitant]
     Indication: RASH
     Dosage: UNK
     Dates: start: 20110413, end: 20110615
  8. CIMETIDINE [Concomitant]
     Indication: PEPTIC ULCER
     Dosage: UNK
     Dates: start: 20100210, end: 20120328
  9. DEXTROMETHORPHAN [Concomitant]
     Indication: COUGH
     Dosage: UNK
     Dates: start: 20120517, end: 20120615
  10. ETOFENAMATE [Concomitant]
     Indication: PAIN
     Dosage: UNK
     Dates: start: 20110511, end: 20110615
  11. FAMOTIDINE [Concomitant]
     Indication: PEPTIC ULCER
     Dosage: UNK
     Dates: start: 20120627
  12. GLIPIZID [Concomitant]
     Indication: DIABETES MELLITUS
     Dosage: UNK
     Dates: start: 20120205
  13. IBUPROFEN [Concomitant]
     Indication: PAIN
     Dosage: UNK
     Dates: start: 20110216, end: 20110413
  14. IBUPROFEN [Concomitant]
     Dosage: UNK
     Dates: start: 20110615
  15. LEVOCETIRIZINE [Concomitant]
     Indication: RASH
     Dosage: UNK
     Dates: start: 20101027, end: 20110907
  16. LEVOCETIRIZINE [Concomitant]
     Dosage: UNK
     Dates: start: 20120328, end: 20120919
  17. LEVOFLOXACIN [Concomitant]
     Indication: ASTHMA
     Dosage: UNK
     Dates: start: 20120522, end: 20120531
  18. LORATADINE [Concomitant]
     Indication: ASTHMA
     Dosage: UNK
     Dates: start: 20120519, end: 20120522
  19. MAGNESIUM OXIDE [Concomitant]
     Indication: CONSTIPATION
     Dosage: UNK
     Dates: start: 20080618
  20. METFORMIN [Concomitant]
     Indication: DIABETES MELLITUS
     Dosage: UNK
     Dates: start: 20090624
  21. METHYLPREDNISOLONE [Concomitant]
     Indication: ASTHMA
     Dosage: UNK
     Dates: start: 20120516, end: 20120523
  22. MOXIFLOXACIN [Concomitant]
     Indication: PNEUMONIA
     Dosage: UNK
     Dates: start: 20120516, end: 20120521
  23. MOXIFLOXACIN [Concomitant]
     Dosage: UNK
  24. NEO-CORTISONE [Concomitant]
     Indication: PRURITUS
     Dosage: UNK
     Dates: start: 20081008, end: 20120424
  25. PREDNISOLONE [Concomitant]
     Indication: OSTEOPOROSIS
     Dosage: UNK
     Dates: end: 20110330
  26. PREDNISOLONE [Concomitant]
     Dosage: UNK
  27. THEOPHYLLINE [Concomitant]
     Indication: ASTHMA
     Dosage: UNK
     Dates: start: 20101027, end: 20110330
  28. THEOPHYLLINE [Concomitant]
     Dosage: UNK
     Dates: start: 20110413
  29. TRAMADOL [Concomitant]
     Indication: PAIN
     Dosage: UNK
     Dates: end: 20110316
  30. TRANEXAMIC ACID [Concomitant]
     Indication: HAEMOPTYSIS
     Dosage: UNK
     Dates: start: 20120518, end: 20120531
  31. ULTRACET [Concomitant]
     Indication: PAIN
     Dosage: UNK
     Dates: start: 20110316, end: 20110608
  32. ULTRACET [Concomitant]
     Dosage: UNK
     Dates: start: 20120328
  33. ZOLPIDEM [Concomitant]
     Indication: INSOMNIA
     Dosage: UNK
     Dates: start: 20100602, end: 20110907

REACTIONS (1)
  - Skin exfoliation [Unknown]
